FAERS Safety Report 8542648-9 (Version None)
Quarter: 2012Q3

REPORT INFORMATION
  Report Type: 
  Country: None (occurrence: None)
  Receive Date: 20120727
  Receipt Date: 20120720
  Transmission Date: 20120928
  Serious: Yes (Hospitalization)
  Sender: FDA-Public Use
  Company Number: BR-AMGEN-BRASP2012045435

PATIENT
  Age: 77 Year
  Sex: Female

DRUGS (8)
  1. NOVOLIN N [Concomitant]
     Indication: DIABETES MELLITUS
     Dosage: 10 UNIT, UNK
     Route: 058
  2. ATENOLOL [Concomitant]
     Indication: BLOOD PRESSURE
     Dosage: 50 MG, UNK
     Route: 048
  3. ISOSORBIDE MONONITRATE [Concomitant]
     Indication: CARDIAC DISORDER
     Dosage: 20 MG, UNK
     Route: 048
  4. CINACALCET HYDROCHLORIDE [Suspect]
     Indication: HYPERPARATHYROIDISM SECONDARY
     Dosage: 30 MG, UNK
     Route: 048
     Dates: end: 20120713
  5. OMEPRAZOLE [Concomitant]
     Indication: GASTRIC DISORDER
     Dosage: 20 MG, UNK
     Route: 048
  6. FOLIC ACID [Concomitant]
     Indication: HAEMODIALYSIS
     Dosage: 5 MG, UNK
     Route: 048
  7. ASPIRIN [Concomitant]
     Indication: CARDIAC DISORDER
     Dosage: 100 MG, UNK
     Route: 048
  8. RENAGEL [Concomitant]
     Indication: HAEMODIALYSIS
     Dosage: 800 MG, UNK
     Route: 048

REACTIONS (2)
  - BLOOD POTASSIUM INCREASED [None]
  - HEART RATE DECREASED [None]
